FAERS Safety Report 12920901 (Version 1)
Quarter: 2016Q4

REPORT INFORMATION
  Report Type: Spontaneous
  Country: US (occurrence: US)
  Receive Date: 20161107
  Receipt Date: 20161107
  Transmission Date: 20170207
  Serious: Yes (Other)
  Sender: FDA-Public Use
  Company Number: None

PATIENT
  Age: 57 Year
  Sex: Male
  Weight: 101.25 kg

DRUGS (3)
  1. DESONIDE. [Suspect]
     Active Substance: DESONIDE
     Indication: PRURITUS
     Dosage: QUANTITY:1 TUBE; TWICE A DAY; TOPICAL?
     Route: 061
  2. DESONIDE. [Suspect]
     Active Substance: DESONIDE
     Indication: ACARODERMATITIS
     Dosage: QUANTITY:1 TUBE; TWICE A DAY; TOPICAL?
     Route: 061
  3. DESONIDE. [Suspect]
     Active Substance: DESONIDE
     Indication: RASH
     Dosage: QUANTITY:1 TUBE; TWICE A DAY; TOPICAL?
     Route: 061

REACTIONS (4)
  - Skin discolouration [None]
  - Pallor [None]
  - Pruritus [None]
  - Swelling face [None]

NARRATIVE: CASE EVENT DATE: 19950628
